FAERS Safety Report 9355096 (Version 6)
Quarter: 2014Q2

REPORT INFORMATION
  Report Type: Report from Study
  Country: CA (occurrence: CA)
  Receive Date: 20130619
  Receipt Date: 20140408
  Transmission Date: 20141212
  Serious: Yes (Hospitalization, Other)
  Sender: FDA-Public Use
  Company Number: CA-ROCHE-1182298

PATIENT
  Age: 49 Year
  Sex: Female
  Weight: 70 kg

DRUGS (6)
  1. TOCILIZUMAB [Suspect]
     Indication: RHEUMATOID ARTHRITIS
     Dosage: DATE OF LAST DOSE PRIOR TO SAE:06/JUN/2013
     Route: 042
     Dates: start: 20130117
  2. TOCILIZUMAB [Suspect]
     Route: 042
     Dates: start: 20130606, end: 20130607
  3. PREDNISONE [Concomitant]
     Dosage: TOTAL DAILY DOSE
     Route: 048
     Dates: start: 1985
  4. SYNTHROID [Concomitant]
     Route: 065
  5. METHOTREXATE [Concomitant]
     Route: 058
     Dates: start: 199101
  6. IBUPROFEN [Concomitant]
     Route: 048

REACTIONS (10)
  - Lymphadenopathy [Not Recovered/Not Resolved]
  - Anaphylactic reaction [Recovered/Resolved]
  - Thinking abnormal [Not Recovered/Not Resolved]
  - Aphasia [Not Recovered/Not Resolved]
  - Oropharyngeal pain [Not Recovered/Not Resolved]
  - Skin warm [Not Recovered/Not Resolved]
  - Ocular hyperaemia [Not Recovered/Not Resolved]
  - Goitre [Not Recovered/Not Resolved]
  - Infusion related reaction [Not Recovered/Not Resolved]
  - Fungal infection [Not Recovered/Not Resolved]
